FAERS Safety Report 9601249 (Version 1)
Quarter: 2013Q4

REPORT INFORMATION
  Report Type: Spontaneous
  Country: AR (occurrence: AR)
  Receive Date: 20131006
  Receipt Date: 20131006
  Transmission Date: 20140711
  Serious: Yes (Other)
  Sender: FDA-Public Use
  Company Number: AR-MYLANLABS-2013S1021569

PATIENT
  Age: 55 Year
  Sex: Female

DRUGS (4)
  1. AGOMELATINE [Suspect]
     Indication: OVERDOSE
     Dosage: 350MG
     Route: 048
  2. TRIMIPRAMINE [Suspect]
     Indication: OVERDOSE
     Dosage: 3000MG
     Route: 048
  3. LORAZEPAM [Suspect]
     Indication: OVERDOSE
     Dosage: 90MG
     Route: 048
  4. ZOPICLONE [Suspect]
     Indication: OVERDOSE
     Dosage: 150MG
     Route: 048

REACTIONS (5)
  - Electrocardiogram QT prolonged [Recovered/Resolved]
  - Condition aggravated [Unknown]
  - Overdose [Unknown]
  - Coma [Unknown]
  - Somnolence [Unknown]
